FAERS Safety Report 20561749 (Version 2)
Quarter: 2022Q2

REPORT INFORMATION
  Report Type: Spontaneous
  Country: US (occurrence: US)
  Receive Date: 20220307
  Receipt Date: 20220421
  Transmission Date: 20220721
  Serious: No
  Sender: FDA-Public Use
  Company Number: US-PFIZER INC-202200144526

PATIENT
  Age: 68 Year
  Sex: Female
  Weight: 72.57 kg

DRUGS (2)
  1. CYTOMEL [Suspect]
     Active Substance: LIOTHYRONINE SODIUM
     Dosage: 5 MG (5 MG THREE, ONE IN THE AFTERNOON AND TWO IN THE EVENING)
  2. CYTOMEL [Suspect]
     Active Substance: LIOTHYRONINE SODIUM
     Dosage: 5 UG

REACTIONS (4)
  - Cardiac disorder [Unknown]
  - Memory impairment [Unknown]
  - Frustration tolerance decreased [Unknown]
  - Off label use [Unknown]
